FAERS Safety Report 10758951 (Version 1)
Quarter: 2015Q1

REPORT INFORMATION
  Report Type: Spontaneous
  Country: US (occurrence: US)
  Receive Date: 20150203
  Receipt Date: 20150203
  Transmission Date: 20150721
  Serious: Yes (Disabling, Other)
  Sender: FDA-Public Use
  Company Number: US-BAYER-2015-012865

PATIENT
  Sex: Female

DRUGS (6)
  1. ALKA-SELTZER HEARTBURN [Suspect]
     Active Substance: ANHYDROUS CITRIC ACID\SODIUM BICARBONATE
     Indication: HYPERSENSITIVITY
     Dosage: UNK
     Route: 048
  2. CORICIDIN D [CHLORPHENAM MAL,PARACET,PHENYLPROPANOLAM HCL] [Suspect]
     Active Substance: ACETAMINOPHEN\CHLORPHENIRAMINE MALEATE\PHENYLEPHRINE HYDROCHLORIDE
     Indication: HYPERSENSITIVITY
     Dosage: UNK
     Route: 048
  3. CONTAC [CHLORPHENAMINE MALEATE,PHENYLPROPANOLAMINE HYDROCHLORIDE] [Suspect]
     Active Substance: CHLORPHENIRAMINE MALEATE\PHENYLPROPANOLAMINE HYDROCHLORIDE
     Indication: HYPERSENSITIVITY
     Dosage: UNK
     Route: 048
  4. ALKA-SELTZER ORIGINAL [Suspect]
     Active Substance: ANHYDROUS CITRIC ACID\ASPIRIN\SODIUM BICARBONATE
     Indication: HYPERSENSITIVITY
     Dosage: UNK
     Route: 048
  5. CLEMASTFUMA W/PHENYLPROPANOLAMHC [Suspect]
     Active Substance: CLEMASTINE FUMARATE\PHENYLPROPANOLAMINE HYDROCHLORIDE
     Indication: HYPERSENSITIVITY
     Dosage: UNK
     Route: 048
  6. ROBITUSSIN CF [DEXTROMET HBR,GUAIF,PSEUDOEPH HCL] [Suspect]
     Active Substance: DEXTROMETHORPHAN HYDROBROMIDE\GUAIFENESIN\PSEUDOEPHEDRINE HYDROCHLORIDE
     Indication: HYPERSENSITIVITY
     Dosage: UNK
     Route: 048

REACTIONS (4)
  - Injury [None]
  - Cognitive disorder [None]
  - Cerebrovascular accident [None]
  - Hemiplegia [None]

NARRATIVE: CASE EVENT DATE: 19951103
